FAERS Safety Report 6720387-4 (Version None)
Quarter: 2010Q2

REPORT INFORMATION
  Report Type: 
  Country: None (occurrence: None)
  Receive Date: 20100511
  Receipt Date: 20100503
  Transmission Date: 20101027
  Serious: Yes (Other)
  Sender: FDA-Public Use
  Company Number: US-PFIZER INC-2010045112

PATIENT
  Sex: Female

DRUGS (1)
  1. NICOTROL [Suspect]
     Dosage: UNK

REACTIONS (5)
  - BURNING SENSATION MUCOSAL [None]
  - FEELING ABNORMAL [None]
  - HEADACHE [None]
  - IMPAIRED HEALING [None]
  - LUNG LOBECTOMY [None]
